FAERS Safety Report 7097452-8 (Version None)
Quarter: 2010Q4

REPORT INFORMATION
  Report Type: 
  Country: None (occurrence: None)
  Receive Date: 20101111
  Receipt Date: 20101108
  Transmission Date: 20110411
  Serious: Yes (Other)
  Sender: FDA-Public Use
  Company Number: US-PFIZER INC-2010101811

PATIENT
  Sex: Male
  Weight: 126 kg

DRUGS (8)
  1. CELEBREX [Suspect]
     Indication: NEUROPATHY PERIPHERAL
     Dosage: 100 MG, 4X/DAY
     Route: 048
  2. CELEBREX [Suspect]
     Indication: NERVOUS SYSTEM DISORDER
  3. CELEBREX [Suspect]
     Indication: HYPOAESTHESIA
  4. CELEBREX [Suspect]
     Indication: HAEMORRHOIDS
  5. CELEBREX [Suspect]
  6. ACETYLSALICYLIC ACID [Suspect]
     Dosage: UNK
  7. METFORMIN [Concomitant]
     Indication: DIABETES MELLITUS
     Dosage: UNK
     Route: 048
  8. INSULIN [Concomitant]
     Indication: DIABETES MELLITUS
     Dosage: UNK
     Route: 058

REACTIONS (10)
  - DIABETES MELLITUS [None]
  - HAEMORRHAGE [None]
  - HEPATIC CYST [None]
  - LIMB DISCOMFORT [None]
  - MALAISE [None]
  - MEDICATION ERROR [None]
  - NERVOUSNESS [None]
  - NEUROPATHY PERIPHERAL [None]
  - OEDEMA PERIPHERAL [None]
  - RENAL CYST [None]
